FAERS Safety Report 7349837-X (Version None)
Quarter: 2011Q1

REPORT INFORMATION
  Report Type: 
  Country: None (occurrence: None)
  Receive Date: 20110314
  Receipt Date: 20110309
  Transmission Date: 20110831
  Serious: Yes (Hospitalization, Other)
  Sender: FDA-Public Use
  Company Number: FR-ROCHE-695726

PATIENT
  Sex: Female
  Weight: 71 kg

DRUGS (6)
  1. BEVACIZUMAB [Suspect]
     Route: 042
     Dates: start: 20100712
  2. BEVACIZUMAB [Suspect]
     Route: 042
     Dates: end: 20101227
  3. NOCTAMIDE [Concomitant]
     Dates: start: 19950301
  4. SOTALOL HYDROCHLORIDE [Concomitant]
     Dates: start: 19950301
  5. DOCETAXEL [Suspect]
     Dosage: FORM: VIAL. DATE OF ALST DOSE:15 APRIL 2010.
     Route: 042
     Dates: start: 20100304
  6. BEVACIZUMAB [Suspect]
     Dosage: FORM: INFUSION
     Route: 042
     Dates: start: 20100304

REACTIONS (10)
  - GENERAL PHYSICAL HEALTH DETERIORATION [None]
  - NEUTROPENIA [None]
  - DECREASED APPETITE [None]
  - ASPARTATE AMINOTRANSFERASE INCREASED [None]
  - ASTHENIA [None]
  - BACK PAIN [None]
  - HEPATIC FUNCTION ABNORMAL [None]
  - ALANINE AMINOTRANSFERASE INCREASED [None]
  - GAMMA-GLUTAMYLTRANSFERASE INCREASED [None]
  - BLOOD ALKALINE PHOSPHATASE INCREASED [None]
